FAERS Safety Report 8641093 (Version 2)
Quarter: 2012Q4

REPORT INFORMATION
  Report Type: Report from Study
  Country: FR (occurrence: FR)
  Receive Date: 20120628
  Receipt Date: 20120910
  Transmission Date: 20130627
  Serious: Yes (Hospitalization)
  Sender: FDA-Public Use
  Company Number: FR-SHIRE-SPV1-2012-00556

PATIENT
  Age: 57 Year
  Sex: Female
  Weight: 50 kg

DRUGS (6)
  1. ANAGRELIDE [Suspect]
     Indication: ESSENTIAL THROMBOCYTHAEMIA
     Dosage: 0.8 mg, 1x/day:qd
     Route: 048
     Dates: start: 20120406, end: 20120606
  2. ANAGRELIDE [Suspect]
     Dosage: UNK
     Route: 048
     Dates: start: 20111203
  3. ATACAND [Concomitant]
     Indication: HYPERTENSION
     Dosage: 8 mg, 1x/day:qd
     Dates: start: 2009
  4. ATACAND [Concomitant]
     Dosage: 24 mg, 1x/day:qd
  5. OMEPRAZOLE [Concomitant]
     Indication: GASTROOESOPHAGEAL REFLUX DISEASE
     Dosage: 20 mg, Unknown
     Dates: start: 2011
  6. ZYRTEC [Concomitant]
     Indication: ASTHMA
     Dosage: UNK
     Dates: start: 2009

REACTIONS (1)
  - Hypertensive crisis [Recovered/Resolved]
